FAERS Safety Report 7921467-8 (Version None)
Quarter: 2011Q4

REPORT INFORMATION
  Report Type: 
  Country: None (occurrence: None)
  Receive Date: 20111117
  Receipt Date: 20110125
  Transmission Date: 20120403
  Serious: No
  Sender: FDA-Public Use
  Company Number: US-MYLANLABS-2011S1001960

PATIENT
  Sex: Female

DRUGS (5)
  1. NADOLOL [Suspect]
     Indication: HEART RATE DECREASED
     Route: 048
     Dates: start: 20110101
  2. ASPIRIN [Concomitant]
     Dates: start: 20110101
  3. PLAVIX [Concomitant]
     Dates: start: 20110101
  4. VITAMIN TAB [Concomitant]
  5. SIMVASTATIN [Concomitant]
     Dates: start: 20110101

REACTIONS (4)
  - CHEST PAIN [None]
  - LIMB DISCOMFORT [None]
  - DIZZINESS [None]
  - DYSPNOEA [None]
